FAERS Safety Report 5073562-1 (Version None)
Quarter: 2006Q3

REPORT INFORMATION
  Report Type: 
  Country: None (occurrence: None)
  Receive Date: 20060717
  Receipt Date: 20060109
  Transmission Date: 20061208
  Serious: No
  Sender: FDA-Public Use
  Company Number: 2006000086

PATIENT
  Age: 84 Year
  Sex: Female

DRUGS (1)
  1. TARCEVA (TABLET) (ERLTINIB) [Suspect]
     Indication: NON-SMALL CELL LUNG CANCER
     Dosage: 150 MG (QD), ORAL
     Route: 048
     Dates: start: 20051204

REACTIONS (7)
  - DIARRHOEA [None]
  - DRY MOUTH [None]
  - DRY SKIN [None]
  - FATIGUE [None]
  - RASH [None]
  - SKIN FISSURES [None]
  - VAGINAL DISORDER [None]
